FAERS Safety Report 8312880-8 (Version None)
Quarter: 2012Q2

REPORT INFORMATION
  Report Type: 
  Country: None (occurrence: None)
  Receive Date: 20120426
  Receipt Date: 20120420
  Transmission Date: 20120825
  Serious: No
  Sender: FDA-Public Use
  Company Number: US-PFIZER INC-2012086984

PATIENT
  Sex: Female

DRUGS (1)
  1. VISTARIL [Suspect]
     Dosage: 50 MG, EVERY BEDTIME (2 PO QHS 2)
     Route: 048

REACTIONS (1)
  - NO ADVERSE EVENT [None]
